FAERS Safety Report 13371117 (Version 1)
Quarter: 2017Q1

REPORT INFORMATION
  Report Type: Other
  Country: US (occurrence: US)
  Receive Date: 20170324
  Receipt Date: 20170324
  Transmission Date: 20170429
  Serious: Yes (Hospitalization)
  Sender: FDA-Public Use
  Company Number: US-WOCKHARDT USA, LLC-1064627

PATIENT
  Age: 55 Year
  Sex: Male

DRUGS (1)
  1. VENLAFAXINE HCL [Suspect]
     Active Substance: VENLAFAXINE HYDROCHLORIDE

REACTIONS (2)
  - Intentional overdose [Recovered/Resolved]
  - Lactic acidosis [Recovered/Resolved]
